FAERS Safety Report 23891023 (Version 6)
Quarter: 2024Q3

REPORT INFORMATION
  Report Type: Spontaneous
  Country: US (occurrence: US)
  Receive Date: 20240523
  Receipt Date: 20240903
  Transmission Date: 20241016
  Serious: Yes (Hospitalization, Other)
  Sender: SANOFI AVENTIS
  Company Number: US-SA-SAC20240516001176

PATIENT
  Age: 65 Year
  Sex: Male

DRUGS (3)
  1. ALTUVIIIO [Suspect]
     Active Substance: EFANESOCTOCOG ALFA
     Dosage: 2700 UNITS/4500 UNITS, PRN
     Route: 042
  2. ALTUVIIIO [Suspect]
     Active Substance: EFANESOCTOCOG ALFA
     Dosage: 2700 UNITS/4500 UNITS, QW AS DIRECTED
     Route: 042
  3. ALTUVIIIO [Suspect]
     Active Substance: EFANESOCTOCOG ALFA
     Dosage: 2000 U (1 DOSE OF 2000 UNITS)
     Route: 042
     Dates: start: 20240620, end: 20240620

REACTIONS (8)
  - Haemorrhage [Unknown]
  - Peripheral swelling [Unknown]
  - Knee arthroplasty [Unknown]
  - Contusion [Unknown]
  - Post procedural complication [Not Recovered/Not Resolved]
  - Urinary tract infection [Unknown]
  - Localised infection [Unknown]
  - Haemorrhage [Unknown]

NARRATIVE: CASE EVENT DATE: 20240101
